FAERS Safety Report 19137296 (Version 1)
Quarter: 2021Q2

REPORT INFORMATION
  Report Type: Spontaneous
  Country: DE (occurrence: DE)
  Receive Date: 20210415
  Receipt Date: 20210415
  Transmission Date: 20210717
  Serious: Yes (Hospitalization)
  Sender: FDA-Public Use
  Company Number: DE-TEVA-2021-DE-1899940

PATIENT
  Age: 83 Year
  Sex: Female

DRUGS (11)
  1. METHOTREXAT [Suspect]
     Active Substance: METHOTREXATE
     Dosage: 15 MG , SATURDAY
     Route: 065
  2. AMLODIPIN [Concomitant]
     Active Substance: AMLODIPINE BESYLATE
     Dosage: 5 MG, AS NEEDED
  3. ALENDRONSAURE [Concomitant]
     Active Substance: ALENDRONIC ACID
     Dosage: 70 MG , WEDNESDAY
  4. TORASEMID [Concomitant]
     Active Substance: TORSEMIDE
     Dosage: 5 MG, MON, THU
  5. FOLSAURE [Concomitant]
     Active Substance: FOLIC ACID
     Dosage: 5 MG, 1 X SUNDAY
  6. TANNACOMP [Concomitant]
     Dosage: 2 DOSAGE FORMS DAILY; 0?1?1?0
  7. PANTOPRAZOL [Concomitant]
     Active Substance: PANTOPRAZOLE SODIUM
     Dosage: 40 MG ,SATURDAY
  8. PREDNISOLON [Suspect]
     Active Substance: PREDNISOLONE
     Dosage: 1 MILLIGRAM DAILY; 1?0?0?0
     Route: 065
  9. RAMIPRIL. [Concomitant]
     Active Substance: RAMIPRIL
     Dosage: 5 MILLIGRAM DAILY; 1?0?1?0
  10. LEVOTHYROXIN?NATRIUM [Concomitant]
     Active Substance: LEVOTHYROXINE SODIUM
     Dosage: 75 MICROGRAM DAILY; 1?0?0?0
  11. DEKRISTOL 20000I.E. [Concomitant]
     Dosage: 20,000 IU, THURSDAY

REACTIONS (3)
  - Arthralgia [Unknown]
  - Tibia fracture [Unknown]
  - Fall [Unknown]
